FAERS Safety Report 6618323-4 (Version None)
Quarter: 2010Q1

REPORT INFORMATION
  Report Type: 
  Country: None (occurrence: None)
  Receive Date: 20100302
  Receipt Date: 20100219
  Transmission Date: 20100710
  Serious: Yes (Other)
  Sender: FDA-Public Use
  Company Number: 231345J10USA

PATIENT
  Age: 52 Year
  Sex: Female

DRUGS (4)
  1. REBIF [Suspect]
     Indication: MULTIPLE SCLEROSIS
     Dosage: 44 MCG, 3 IN 1 WEEKS, SUBCUTANEOUS
     Route: 058
     Dates: start: 20030707
  2. ANTIBIOTICS (ANTIBIOTICS) [Concomitant]
  3. UNSPECIFIED HIGH BLOOD PRESSURE MEDICATION (ALL OTHER THERAPEUTIC PROD [Concomitant]
  4. ASPIRIN [Concomitant]

REACTIONS (2)
  - CARDIOVASCULAR DISORDER [None]
  - PAIN [None]
